FAERS Safety Report 4431303-2 (Version None)
Quarter: 2004Q3

REPORT INFORMATION
  Report Type: 
  Country: None (occurrence: None)
  Receive Date: 20040817
  Receipt Date: 20040809
  Transmission Date: 20050211
  Serious: Yes (Other)
  Sender: FDA-Public Use
  Company Number: 2004227525CA

PATIENT
  Age: 28 Year
  Sex: Female
  Weight: 68 kg

DRUGS (2)
  1. DEPO-PROVERA [Suspect]
     Indication: CONTRACEPTION
     Dosage: 150 MG/10 3WEEKS 1ST INJ, INTRAMUSCULAR
     Route: 030
     Dates: start: 20010801, end: 20010801
  2. DEPO-PROVERA [Suspect]
     Indication: CONTRACEPTION
     Dosage: 150 MG/10 3WEEKS 1ST INJ, INTRAMUSCULAR
     Route: 030
     Dates: start: 20040607, end: 20040607

REACTIONS (3)
  - ABDOMINAL DISCOMFORT [None]
  - METRORRHAGIA [None]
  - PRECANCEROUS CELLS PRESENT [None]
